FAERS Safety Report 22539934 (Version 2)
Quarter: 2023Q2

REPORT INFORMATION
  Report Type: Spontaneous
  Country: US (occurrence: US)
  Receive Date: 20230609
  Receipt Date: 20230616
  Transmission Date: 20230721
  Serious: Yes (Other)
  Sender: FDA-Public Use
  Company Number: US-ABBVIE-5279970

PATIENT
  Sex: Female

DRUGS (1)
  1. REFRESH P.M. [Suspect]
     Active Substance: MINERAL OIL\PETROLATUM
     Indication: Dry eye
     Route: 047

REACTIONS (3)
  - Surgery [Unknown]
  - Cataract [Unknown]
  - Visual impairment [Unknown]
